FAERS Safety Report 8880507 (Version 2)
Quarter: 2012Q4

REPORT INFORMATION
  Report Type: 
  Country: US (occurrence: US)
  Receive Date: 20121031
  Receipt Date: 20121212
  Transmission Date: 20130627
  Serious: Yes (Death)
  Sender: FDA-Public Use
  Company Number: US-ROCHE-1150787

PATIENT
  Age: 55 Year
  Sex: Female
  Weight: 49.03 kg

DRUGS (6)
  1. AVASTIN [Suspect]
     Indication: NON-SMALL CELL LUNG CANCER
     Route: 042
     Dates: start: 20120711, end: 20121011
  2. ALIMTA [Suspect]
     Indication: LUNG NEOPLASM MALIGNANT
     Route: 042
     Dates: start: 20120711, end: 20121011
  3. CARBOPLATIN [Suspect]
     Indication: LUNG NEOPLASM MALIGNANT
     Route: 042
     Dates: start: 20120711, end: 20121011
  4. ZOMETA [Concomitant]
     Indication: METASTASES TO BONE
     Route: 042
     Dates: start: 20120822, end: 20121018
  5. FENTANYL [Concomitant]
     Indication: PAIN
     Route: 062
  6. OXY IR [Concomitant]
     Indication: PAIN
     Route: 048

REACTIONS (1)
  - Hypovolaemic shock [Fatal]
